FAERS Safety Report 19246313 (Version 2)
Quarter: 2021Q2

REPORT INFORMATION
  Report Type: Spontaneous
  Country: US (occurrence: US)
  Receive Date: 20210512
  Receipt Date: 20210520
  Transmission Date: 20210717
  Serious: Yes (Other)
  Sender: FDA-Public Use
  Company Number: US-PFIZER INC-2021503927

PATIENT
  Age: 27 Year
  Sex: Female

DRUGS (4)
  1. BESPONSA [Suspect]
     Active Substance: INOTUZUMAB OZOGAMICIN
     Dosage: 0.5 MG, SINGLE
  2. BESPONSA [Suspect]
     Active Substance: INOTUZUMAB OZOGAMICIN
     Dosage: 0.5 MG, SINGLE
  3. BESPONSA [Suspect]
     Active Substance: INOTUZUMAB OZOGAMICIN
     Dosage: 0.5 MG, SINGLE
  4. BESPONSA [Suspect]
     Active Substance: INOTUZUMAB OZOGAMICIN
     Dosage: 0.8 MG, SINGLE

REACTIONS (7)
  - Abdominal pain [Unknown]
  - Renal failure [Unknown]
  - Ascites [Unknown]
  - Liver function test abnormal [Unknown]
  - Venoocclusive disease [Unknown]
  - Blood bilirubin increased [Unknown]
  - Weight increased [Recovering/Resolving]
